FAERS Safety Report 6266647-5 (Version None)
Quarter: 2009Q3

REPORT INFORMATION
  Report Type: 
  Country: None (occurrence: None)
  Receive Date: 20090709
  Receipt Date: 20090624
  Transmission Date: 20100115
  Serious: Yes (Death, Hospitalization)
  Sender: FDA-Public Use
  Company Number: 20090264

PATIENT
  Age: 66 Year
  Sex: Female
  Weight: 65.7716 kg

DRUGS (11)
  1. VENOFER [Suspect]
     Indication: IRON DEFICIENCY ANAEMIA
     Dosage: 300MG/M2/WEEK , INTRAVENOUS
     Route: 042
     Dates: start: 20090114, end: 20090204
  2. FLONASE [Concomitant]
  3. PERCOCET [Concomitant]
  4. ALLEGRA [Concomitant]
  5. NEXIUM [Concomitant]
  6. ADVAIR HFA [Concomitant]
  7. HYDROCHLOROTHIAZIDE [Concomitant]
  8. ZOLOFT [Concomitant]
  9. SPIRIVA [Concomitant]
  10. MUCINEX [Concomitant]
  11. PREMPRO [Concomitant]

REACTIONS (6)
  - ACUTE MYOCARDIAL INFARCTION [None]
  - CORONARY ARTERY OCCLUSION [None]
  - CORONARY ARTERY THROMBOSIS [None]
  - GASTROINTESTINAL HAEMORRHAGE [None]
  - RENAL INFARCT [None]
  - UNRESPONSIVE TO STIMULI [None]
